FAERS Safety Report 15685001 (Version 1)
Quarter: 2018Q4

REPORT INFORMATION
  Report Type: Spontaneous
  Country: AR (occurrence: AR)
  Receive Date: 20181204
  Receipt Date: 20181204
  Transmission Date: 20190205
  Serious: Yes (Other)
  Sender: FDA-Public Use
  Company Number: AR-BAYER-2018-219141

PATIENT
  Sex: Female

DRUGS (1)
  1. LEVONORGESTREL. [Suspect]
     Active Substance: LEVONORGESTREL
     Route: 015

REACTIONS (12)
  - Therapeutic product ineffective [None]
  - Fluid retention [None]
  - Androgen deficiency [None]
  - Peripheral swelling [None]
  - Joint swelling [None]
  - Dyspareunia [None]
  - Hormone level abnormal [None]
  - Diarrhoea [None]
  - Gastrointestinal disorder [None]
  - Abdominal distension [None]
  - Vulvovaginal dryness [None]
  - Vomiting [None]
